FAERS Safety Report 6649705-2 (Version None)
Quarter: 2010Q1

REPORT INFORMATION
  Report Type: 
  Country: None (occurrence: None)
  Receive Date: 20100324
  Receipt Date: 20090825
  Transmission Date: 20100710
  Serious: No
  Sender: FDA-Public Use
  Company Number: US-AMGEN-KDL361775

PATIENT
  Sex: Female

DRUGS (3)
  1. NEUPOGEN [Suspect]
     Indication: CHEMOTHERAPY
     Dates: start: 20090807
  2. NEULASTA [Suspect]
     Indication: CHEMOTHERAPY
     Dates: start: 20090725
  3. UNSPECIFIED ANTINEOPLASTIC AGENT [Concomitant]

REACTIONS (3)
  - BONE PAIN [None]
  - HEADACHE [None]
  - WHITE BLOOD CELL COUNT DECREASED [None]
